FAERS Safety Report 4268792-2 (Version None)
Quarter: 2004Q1

REPORT INFORMATION
  Report Type: 
  Country: None (occurrence: None)
  Receive Date: 20040108
  Receipt Date: 20011223
  Transmission Date: 20041129
  Serious: Yes (Hospitalization)
  Sender: FDA-Public Use
  Company Number: A03200303044

PATIENT
  Age: 44 Year
  Sex: Male

DRUGS (1)
  1. ELOXATIN [Suspect]
     Indication: RECTAL CANCER METASTATIC
     Dosage: INTRAVENOUS NOS
     Route: 042

REACTIONS (7)
  - ANAEMIA HAEMOLYTIC AUTOIMMUNE [None]
  - BACK PAIN [None]
  - BLOOD URIC ACID INCREASED [None]
  - COOMBS TEST POSITIVE [None]
  - INFUSION RELATED REACTION [None]
  - JAUNDICE [None]
  - RENAL FAILURE [None]
